FAERS Safety Report 14491239 (Version 2)
Quarter: 2019Q3

REPORT INFORMATION
  Report Type: Spontaneous
  Country: US (occurrence: US)
  Receive Date: 20180206
  Receipt Date: 20190814
  Transmission Date: 20191004
  Serious: No
  Sender: FDA-Public Use
  Company Number: US-EMD SERONO-233331K07USA

PATIENT
  Age: 55 Year
  Sex: Female
  Weight: 72 kg

DRUGS (6)
  1. REBIF [Suspect]
     Active Substance: INTERFERON BETA-1A
     Route: 058
  2. IBUPROFEN. [Concomitant]
     Active Substance: IBUPROFEN
     Indication: PREMEDICATION
  3. REBIF [Suspect]
     Active Substance: INTERFERON BETA-1A
     Indication: MULTIPLE SCLEROSIS
     Route: 058
     Dates: start: 20031201
  4. REBIF [Suspect]
     Active Substance: INTERFERON BETA-1A
     Route: 058
     Dates: start: 20070702
  5. REBIF [Suspect]
     Active Substance: INTERFERON BETA-1A
     Route: 058
     Dates: start: 200707
  6. REBIF [Suspect]
     Active Substance: INTERFERON BETA-1A
     Route: 058
     Dates: start: 20171211

REACTIONS (9)
  - Injection site bruising [Unknown]
  - Injection site discolouration [Unknown]
  - Pruritus [Not Recovered/Not Resolved]
  - Urticaria [Not Recovered/Not Resolved]
  - Multiple allergies [Unknown]
  - Dermatitis [Unknown]
  - Autoimmune thyroiditis [Not Recovered/Not Resolved]
  - Injection site reaction [Unknown]
  - Product dose omission [Recovered/Resolved]

NARRATIVE: CASE EVENT DATE: 2003
